FAERS Safety Report 9121140 (Version 2)
Quarter: 2013Q1

REPORT INFORMATION
  Report Type: Spontaneous
  Country: RS (occurrence: RS)
  Receive Date: 20130226
  Receipt Date: 20130306
  Transmission Date: 20140127
  Serious: Yes (Hospitalization)
  Sender: FDA-Public Use
  Company Number: RS-ROCHE-1195100

PATIENT
  Age: 54 Year
  Sex: Male

DRUGS (1)
  1. PEGASYS [Suspect]
     Indication: CHRONIC HEPATITIS B
     Route: 058
     Dates: start: 20111017, end: 20111226

REACTIONS (1)
  - Drug-induced liver injury [Recovered/Resolved]
